FAERS Safety Report 5242409-2 (Version None)
Quarter: 2007Q1

REPORT INFORMATION
  Report Type: 
  Country: None (occurrence: None)
  Receive Date: 20070221
  Receipt Date: 20070209
  Transmission Date: 20070707
  Serious: Yes (Other)
  Sender: FDA-Public Use
  Company Number: US-JNJFOC-20070202875

PATIENT
  Sex: Female
  Weight: 146.06 kg

DRUGS (7)
  1. EXTRA STRENGTH TYLENOL [Suspect]
     Indication: MIGRAINE
  2. EXTRA STRENGTH TYLENOL [Suspect]
     Indication: BACK PAIN
     Dosage: 3000-4000MG DAILY
  3. EXTRA STRENGTH TYLENOL [Suspect]
     Indication: INSOMNIA
     Dosage: 1-2 DOSES, 2-3 TIMES PER WEEK
  4. PERCOCET [Suspect]
     Indication: MIGRAINE
     Dosage: 1-2 DOSES AS NEEDED (USUALLY DURING THE NIGHT)
  5. KLONOPIN [Concomitant]
     Indication: ANXIETY
  6. PREVACID [Concomitant]
     Indication: GASTROOESOPHAGEAL REFLUX DISEASE
  7. LEVAQUIN [Concomitant]
     Indication: PROPHYLAXIS

REACTIONS (7)
  - DRUG ADMINISTRATION ERROR [None]
  - GASTRITIS [None]
  - GASTROINTESTINAL HAEMORRHAGE [None]
  - HEPATITIS [None]
  - INTENTIONAL DRUG MISUSE [None]
  - REFLUX OESOPHAGITIS [None]
  - VOMITING [None]
